FAERS Safety Report 15850883 (Version 1)
Quarter: 2019Q1

REPORT INFORMATION
  Report Type: Report from Study
  Country: None (occurrence: US)
  Receive Date: 20190121
  Receipt Date: 20190121
  Transmission Date: 20190417
  Serious: Yes (Other)
  Sender: FDA-Public Use
  Company Number: US-ABBVIE-18K-163-2559685-00

PATIENT
  Age: 62 Year
  Sex: Female

DRUGS (1)
  1. HUMIRA [Suspect]
     Active Substance: ADALIMUMAB
     Indication: PRODUCT USED FOR UNKNOWN INDICATION
     Route: 058
     Dates: end: 2018

REACTIONS (6)
  - Incisional hernia [Unknown]
  - Diverticulitis [Unknown]
  - Large intestinal stenosis [Unknown]
  - Malaise [Unknown]
  - Intentional product misuse [Unknown]
  - Surgery [Unknown]

NARRATIVE: CASE EVENT DATE: 201801
